FAERS Safety Report 12357477 (Version 2)
Quarter: 2016Q2

REPORT INFORMATION
  Report Type: Spontaneous
  Country: CN (occurrence: CN)
  Receive Date: 20160511
  Receipt Date: 20160512
  Transmission Date: 20160815
  Serious: Yes (Other)
  Sender: FDA-Public Use
  Company Number: CN-JNJFOC-20160427250

PATIENT

DRUGS (9)
  1. ACETAMINOPHEN SUSPENSION DROPS [Suspect]
     Active Substance: ACETAMINOPHEN
     Indication: PRODUCT USED FOR UNKNOWN INDICATION
     Dosage: 0.15 G/12 H 3 DAYS
     Route: 048
  2. ACETAMINOPHEN SUSPENSION DROPS [Suspect]
     Active Substance: ACETAMINOPHEN
     Indication: PRODUCT USED FOR UNKNOWN INDICATION
     Route: 048
  3. MIDAZOLAM [Suspect]
     Active Substance: MIDAZOLAM\MIDAZOLAM HYDROCHLORIDE
     Indication: ANALGESIC THERAPY
     Route: 065
  4. ACETAMINOPHEN SUSPENSION DROPS [Suspect]
     Active Substance: ACETAMINOPHEN
     Indication: PAIN PROPHYLAXIS
     Dosage: 0.15 G/12 H 3 DAYS
     Route: 048
  5. TRAMADOL. [Suspect]
     Active Substance: TRAMADOL
     Indication: ANALGESIC THERAPY
     Route: 065
  6. LIDOCAINE. [Suspect]
     Active Substance: LIDOCAINE
     Indication: PRODUCT USED FOR UNKNOWN INDICATION
     Route: 065
  7. ACETAMINOPHEN SUSPENSION DROPS [Suspect]
     Active Substance: ACETAMINOPHEN
     Indication: PAIN PROPHYLAXIS
     Route: 048
  8. MORPHINE [Suspect]
     Active Substance: MORPHINE
     Indication: PRODUCT USED FOR UNKNOWN INDICATION
     Route: 065
  9. PROPOFOL. [Suspect]
     Active Substance: PROPOFOL
     Indication: ANALGESIC THERAPY
     Route: 065

REACTIONS (3)
  - Off label use [Unknown]
  - Respiratory depression [Unknown]
  - Product use issue [Unknown]
